FAERS Safety Report 15866264 (Version 2)
Quarter: 2019Q2

REPORT INFORMATION
  Report Type: Spontaneous
  Country: US (occurrence: US)
  Receive Date: 20190125
  Receipt Date: 20190408
  Transmission Date: 20190711
  Serious: No
  Sender: FDA-Public Use
  Company Number: US-PFIZER INC-2019033849

PATIENT
  Age: 60 Year
  Sex: Female

DRUGS (5)
  1. VENLAFAXINE HCL [Suspect]
     Active Substance: VENLAFAXINE HYDROCHLORIDE
     Indication: DEPRESSION
     Dosage: 3 DF, DAILY
     Route: 048
     Dates: start: 2000
  2. NORTRIPTYLINE HCL [Concomitant]
     Active Substance: NORTRIPTYLINE HYDROCHLORIDE
     Dosage: UNK
  3. SERTRALINE [Concomitant]
     Active Substance: SERTRALINE HYDROCHLORIDE
     Indication: DEPRESSION
     Dosage: UNK
     Dates: start: 1998
  4. TRAZODONE [Concomitant]
     Active Substance: TRAZODONE HYDROCHLORIDE
     Dosage: UNK
  5. PAMELOR [Concomitant]
     Active Substance: NORTRIPTYLINE HYDROCHLORIDE
     Dosage: UNK

REACTIONS (1)
  - Drug ineffective [Unknown]
